FAERS Safety Report 6546682-X (Version None)
Quarter: 2010Q1

REPORT INFORMATION
  Report Type: 
  Country: None (occurrence: None)
  Receive Date: 20100119
  Receipt Date: 20100104
  Transmission Date: 20100710
  Serious: Yes (Death, Hospitalization)
  Sender: FDA-Public Use
  Company Number: 2009AC000377

PATIENT
  Age: 81 Year
  Sex: Female

DRUGS (37)
  1. DIGOXIN [Suspect]
     Indication: HEART RATE IRREGULAR
     Dosage: 0.125 MG; QD; PO
     Route: 048
  2. DIGOXIN [Suspect]
     Dosage: 0.25 MG; QD; PO
     Route: 048
  3. LASIX [Concomitant]
  4. REGLAN [Concomitant]
  5. GLIPIZIDE [Concomitant]
  6. XANAX [Concomitant]
  7. ZAROXOLYN [Concomitant]
  8. LEVAQUIN [Concomitant]
  9. ALLEGRA [Concomitant]
  10. ALLOPURINOL [Concomitant]
  11. FLAGYL [Concomitant]
  12. GLUCOTROL [Concomitant]
  13. PROTONIX [Concomitant]
  14. VASOTEC [Concomitant]
  15. METOCLOPRAMIDE [Concomitant]
  16. METOLAZONE [Concomitant]
  17. ENALAPRIL MALEATE [Concomitant]
  18. COREG [Concomitant]
  19. MAALOX [Concomitant]
  20. MILK OF MAGNESIA TAB [Concomitant]
  21. ENDOCIN [Concomitant]
  22. ZYLOPRIM [Concomitant]
  23. COUMADIN [Concomitant]
  24. ALPRAZOLAM [Concomitant]
  25. VASOTEC [Concomitant]
  26. GLUCOPHAGE [Concomitant]
  27. PRILOSEC [Concomitant]
  28. MURO [Concomitant]
  29. FUROSEMIDE [Concomitant]
  30. ENALAPRIL MALEATE [Concomitant]
  31. PENICILLIN [Concomitant]
  32. SURESTEP [Concomitant]
  33. POTASSIUM CHLORIDE [Concomitant]
  34. VIGAMOX [Concomitant]
  35. METOLAZONE [Concomitant]
  36. METOCLOPRAMIDE [Concomitant]
  37. GLIPIZIDE [Concomitant]

REACTIONS (25)
  - ABDOMINAL DISTENSION [None]
  - ANAEMIA [None]
  - ANXIETY [None]
  - BRADYCARDIA [None]
  - CARDIAC FAILURE [None]
  - CARDIAC FAILURE CONGESTIVE [None]
  - CARDIOMEGALY [None]
  - DEPRESSED MOOD [None]
  - DIARRHOEA [None]
  - DIVERTICULITIS [None]
  - DIVERTICULUM [None]
  - DYSKINESIA [None]
  - DYSPNOEA [None]
  - ECONOMIC PROBLEM [None]
  - FAECES DISCOLOURED [None]
  - FLATULENCE [None]
  - GASTRITIS [None]
  - GASTROINTESTINAL HAEMORRHAGE [None]
  - HIATUS HERNIA [None]
  - HYPOTENSION [None]
  - NAUSEA [None]
  - PAIN [None]
  - PLEURAL EFFUSION [None]
  - THERAPEUTIC AGENT TOXICITY [None]
  - UNEVALUABLE EVENT [None]
